FAERS Safety Report 21977235 (Version 3)
Quarter: 2023Q1

REPORT INFORMATION
  Report Type: Spontaneous
  Country: DK (occurrence: DK)
  Receive Date: 20230210
  Receipt Date: 20230317
  Transmission Date: 20230418
  Serious: Yes (Death, Hospitalization, Other)
  Sender: FDA-Public Use
  Company Number: DK-UNITED THERAPEUTICS-UNT-2022-028324

PATIENT

DRUGS (1)
  1. REMODULIN [Suspect]
     Active Substance: TREPROSTINIL
     Indication: Pulmonary arterial hypertension
     Dosage: UNK, CONTINUING
     Route: 041
     Dates: start: 20221116, end: 20221226

REACTIONS (3)
  - Propionibacterium infection [Fatal]
  - Illness [Fatal]
  - Procedural complication [Unknown]

NARRATIVE: CASE EVENT DATE: 20221116
